FAERS Safety Report 5009186-1 (Version None)
Quarter: 2006Q2

REPORT INFORMATION
  Report Type: 
  Country: None (occurrence: None)
  Receive Date: 20060519
  Receipt Date: 20060508
  Transmission Date: 20061013
  Serious: Yes (Hospitalization, Other)
  Sender: FDA-Public Use
  Company Number: 216089

PATIENT
  Age: 69 Year
  Sex: Male
  Weight: 47 kg

DRUGS (4)
  1. RITUXIMAB  (RITUXIMAB ) CONC FOR  SOLUTION FOR INFUSION [Suspect]
     Indication: CHRONIC LYMPHOCYTIC LEUKAEMIA
     Dosage: 500 MG/M2, INTRAVENOUS
     Route: 042
     Dates: start: 20040308, end: 20040802
  2. FLUDARABINE [Suspect]
     Indication: CHRONIC LYMPHOCYTIC LEUKAEMIA
     Dosage: 25 MG/M2, INTRAVENOUS
     Route: 042
     Dates: start: 20040309, end: 20040804
  3. CYCLOPHOSPHAMIDE [Suspect]
     Indication: CHRONIC LYMPHOCYTIC LEUKAEMIA
     Dosage: 250 MG/M2, INTRAVENOUS
     Route: 042
     Dates: start: 20040309, end: 20040804
  4. BACTRIM [Concomitant]

REACTIONS (18)
  - BLOOD IMMUNOGLOBULIN G INCREASED [None]
  - BLOOD IMMUNOGLOBULIN M INCREASED [None]
  - BLOOD PRESSURE DECREASED [None]
  - BRONCHIAL CARCINOMA [None]
  - BRONCHOSPASM [None]
  - DIFFICULT TO WEAN FROM VENTILATOR [None]
  - DRUG RESISTANCE [None]
  - GENERAL PHYSICAL HEALTH DETERIORATION [None]
  - GRANULOMA [None]
  - HYPOXIA [None]
  - LYMPHADENOPATHY [None]
  - METASTASES TO LUNG [None]
  - NEISSERIA INFECTION [None]
  - RESPIRATORY ACIDOSIS [None]
  - RESPIRATORY DISTRESS [None]
  - TACHYPNOEA [None]
  - TUBERCULOSIS [None]
  - WHEEZING [None]
